FAERS Safety Report 5096588-0 (Version None)
Quarter: 2006Q3

REPORT INFORMATION
  Report Type: 
  Country: None (occurrence: None)
  Receive Date: 20060905
  Receipt Date: 20060810
  Transmission Date: 20061208
  Serious: Yes (Life-Threatening, Other)
  Sender: FDA-Public Use
  Company Number: JP-ABBOTT-06P-087-0340426-00

PATIENT
  Sex: Male
  Weight: 80 kg

DRUGS (12)
  1. KLARICID [Suspect]
     Indication: SPUTUM PURULENT
     Route: 048
     Dates: start: 20060228, end: 20060306
  2. KLARICID [Suspect]
     Indication: PRODUCTIVE COUGH
     Route: 048
     Dates: start: 20060801, end: 20060802
  3. KLARICID [Suspect]
     Indication: BRONCHITIS BACTERIAL
     Route: 048
     Dates: start: 20060525, end: 20060601
  4. THEOPHYLLINE [Concomitant]
     Indication: BRONCHIECTASIS
     Route: 048
     Dates: start: 20040511, end: 20060804
  5. TEPRENONE [Concomitant]
     Indication: GASTRITIS
     Route: 048
     Dates: start: 20040511, end: 20060804
  6. MECOBALAMIN [Concomitant]
     Indication: HYPOAESTHESIA
     Route: 048
     Dates: start: 20040527, end: 20060804
  7. MECOBALAMIN [Concomitant]
     Indication: DIZZINESS
  8. L-CARBOCISTEINE [Concomitant]
     Indication: PRODUCTIVE COUGH
     Route: 048
     Dates: start: 20040619, end: 20060804
  9. L-CARBOCISTEINE [Concomitant]
  10. AMBROXOL HYDROCHLORIDE [Concomitant]
     Indication: PRODUCTIVE COUGH
     Route: 048
     Dates: start: 20060105, end: 20060804
  11. AMBROXOL HYDROCHLORIDE [Concomitant]
  12. MAGNESIUM OXIDE [Concomitant]
     Indication: CONSTIPATION
     Route: 048
     Dates: start: 20040624, end: 20060804

REACTIONS (9)
  - ANURIA [None]
  - CARDIAC ARREST [None]
  - CARDIAC FAILURE [None]
  - COORDINATION ABNORMAL [None]
  - DEPRESSED LEVEL OF CONSCIOUSNESS [None]
  - MUSCULAR WEAKNESS [None]
  - MYALGIA [None]
  - RESPIRATORY ARREST [None]
  - RHABDOMYOLYSIS [None]
